FAERS Safety Report 24091277 (Version 2)
Quarter: 2024Q3

REPORT INFORMATION
  Report Type: Spontaneous
  Country: US (occurrence: US)
  Receive Date: 20240715
  Receipt Date: 20240717
  Transmission Date: 20241016
  Serious: Yes (Death, Hospitalization)
  Sender: EISAI
  Company Number: US-Eisai-EC-2024-169965

PATIENT
  Age: 74 Year
  Sex: Female

DRUGS (2)
  1. LEQEMBI [Suspect]
     Active Substance: LECANEMAB-IRMB
     Indication: Dementia Alzheimer^s type
     Dosage: DOSE UNKNOWN
     Route: 041
     Dates: start: 20240529, end: 20240612
  2. LEQEMBI [Suspect]
     Active Substance: LECANEMAB-IRMB
     Indication: Cognitive disorder
     Dosage: DOSE UNKNOWN
     Route: 041
     Dates: start: 20240626, end: 20240626

REACTIONS (3)
  - Amyloid related imaging abnormality-oedema/effusion [Fatal]
  - Amyloid related imaging abnormality-microhaemorrhages and haemosiderin deposits [Fatal]
  - Seizure [Fatal]

NARRATIVE: CASE EVENT DATE: 20240703
